FAERS Safety Report 5222934-0 (Version None)
Quarter: 2007Q1

REPORT INFORMATION
  Report Type: 
  Country: None (occurrence: None)
  Receive Date: 20070129
  Receipt Date: 20070117
  Transmission Date: 20070707
  Serious: Yes (Hospitalization, Other)
  Sender: FDA-Public Use
  Company Number: US-PFIZER INC-2005161855

PATIENT
  Sex: Male
  Weight: 69.4 kg

DRUGS (6)
  1. SUTENT [Suspect]
     Indication: RENAL CELL CARCINOMA STAGE UNSPECIFIED
     Route: 048
  2. ZOSYN [Suspect]
     Indication: PERITONITIS
  3. OXYCONTIN [Concomitant]
     Route: 048
  4. PERCOCET [Concomitant]
     Route: 048
  5. COLACE [Concomitant]
     Route: 048
  6. PROTONIX [Concomitant]
     Route: 048
     Dates: start: 20051106, end: 20051108

REACTIONS (3)
  - APPENDICITIS [None]
  - HYPERBILIRUBINAEMIA [None]
  - PERITONITIS [None]
